FAERS Safety Report 14261024 (Version 1)
Quarter: 2017Q4

REPORT INFORMATION
  Report Type: Spontaneous
  Country: US (occurrence: None)
  Receive Date: 20171207
  Receipt Date: 20171207
  Transmission Date: 20180321
  Serious: Yes (Other)
  Sender: FDA-Public Use
  Company Number: None

PATIENT
  Age: 61 Year
  Sex: Male

DRUGS (1)
  1. SAIZENPREP [Suspect]
     Active Substance: SOMATROPIN

REACTIONS (2)
  - Drug dose omission [None]
  - Pneumonia [None]

NARRATIVE: CASE EVENT DATE: 20171129
